FAERS Safety Report 14675986 (Version 2)
Quarter: 2019Q1

REPORT INFORMATION
  Report Type: Report from Study
  Country: US (occurrence: US)
  Receive Date: 20180323
  Receipt Date: 20190123
  Transmission Date: 20190417
  Serious: No
  Sender: FDA-Public Use
  Company Number: PHEH2018US011273

PATIENT
  Sex: Male

DRUGS (2)
  1. ILARIS [Suspect]
     Active Substance: CANAKINUMAB
     Indication: CRYOPYRIN ASSOCIATED PERIODIC SYNDROME
     Dosage: 75 MG, EVERY 4 WEEKS
     Route: 058
  2. ILARIS [Suspect]
     Active Substance: CANAKINUMAB
     Dosage: 82.5 MG, EVERY 4 WEEKS
     Route: 058

REACTIONS (7)
  - Therapeutic response shortened [Unknown]
  - Malaise [Unknown]
  - Pallor [Unknown]
  - Cough [Unknown]
  - Lethargy [Unknown]
  - Rhinorrhoea [Unknown]
  - Pain [Recovering/Resolving]
